FAERS Safety Report 7272133-6 (Version None)
Quarter: 2011Q1

REPORT INFORMATION
  Report Type: 
  Country: None (occurrence: None)
  Receive Date: 20110203
  Receipt Date: 20110124
  Transmission Date: 20110831
  Serious: Yes (Life-Threatening)
  Sender: FDA-Public Use
  Company Number: US-ELI_LILLY_AND_COMPANY-US201101005855

PATIENT
  Sex: Female
  Weight: 62.5 kg

DRUGS (3)
  1. MELATONIN [Concomitant]
     Indication: DEPRESSION
     Dates: start: 20101028
  2. NUVARING [Concomitant]
     Indication: CONTRACEPTION
     Dates: start: 20050101
  3. HUMALOG [Suspect]
     Indication: TYPE 1 DIABETES MELLITUS
     Dosage: 1 D/F, UNK
     Route: 058
     Dates: start: 20101011

REACTIONS (1)
  - CONVULSION [None]
